FAERS Safety Report 24925651 (Version 1)
Quarter: 2025Q1

REPORT INFORMATION
  Report Type: Report from Study
  Country: US (occurrence: US)
  Receive Date: 20250204
  Receipt Date: 20250204
  Transmission Date: 20250409
  Serious: Yes (Other)
  Sender: ABBVIE
  Company Number: US-ABBVIE-6109530

PATIENT
  Sex: Male

DRUGS (1)
  1. SKYRIZI [Suspect]
     Active Substance: RISANKIZUMAB-RZAA
     Indication: Psoriasis
     Route: 058

REACTIONS (6)
  - Rotator cuff repair [Recovered/Resolved]
  - Poor quality sleep [Not Recovered/Not Resolved]
  - Feeling abnormal [Recovering/Resolving]
  - Muscle strain [Recovering/Resolving]
  - Bronchitis [Recovered/Resolved]
  - Speech disorder [Recovering/Resolving]
